FAERS Safety Report 9023372 (Version 2)
Quarter: 2013Q1

REPORT INFORMATION
  Report Type: Report from Study
  Country: US (occurrence: US)
  Receive Date: 20130117
  Receipt Date: 20130215
  Transmission Date: 20140127
  Serious: Yes (Hospitalization)
  Sender: FDA-Public Use
  Company Number: US-ROCHE-1180533

PATIENT
  Age: 72 None
  Sex: Male
  Weight: 98.97 kg

DRUGS (6)
  1. XELODA [Suspect]
     Indication: COLON CANCER
     Route: 048
     Dates: start: 20130112
  2. XELODA [Suspect]
     Route: 048
     Dates: start: 20130112
  3. XELODA [Suspect]
     Route: 048
     Dates: start: 201301
  4. BABY ASPIRIN [Concomitant]
     Indication: HEADACHE
     Dosage: 1 TABLET
     Route: 048
  5. OXALIPLATIN [Concomitant]
     Indication: COLON CANCER
     Route: 042
  6. COLACE [Concomitant]
     Indication: CONSTIPATION
     Route: 048

REACTIONS (10)
  - Colectomy [Recovered/Resolved]
  - Abdominal pain upper [Recovered/Resolved]
  - Headache [Not Recovered/Not Resolved]
  - Constipation [Recovering/Resolving]
  - Nausea [Not Recovered/Not Resolved]
  - Retching [Not Recovered/Not Resolved]
  - Abdominal pain upper [Not Recovered/Not Resolved]
  - Insomnia [Not Recovered/Not Resolved]
  - Aphagia [Not Recovered/Not Resolved]
  - Weight decreased [Not Recovered/Not Resolved]
